FAERS Safety Report 9024707 (Version 3)
Quarter: 2013Q4

REPORT INFORMATION
  Report Type: Spontaneous
  Country: US (occurrence: None)
  Receive Date: 20121231
  Receipt Date: 20131114
  Transmission Date: 20140711
  Serious: Yes (Other)
  Sender: FDA-Public Use
  Company Number: JPI-P-027846

PATIENT
  Age: 56 Year
  Sex: Female
  Weight: 88 kg

DRUGS (5)
  1. XYREM (500 MILLIGRAM/MILLILITERS, SOLUTION) (SODIUM OXYBATE) [Suspect]
     Indication: SOMNOLENCE
     Dosage: 6 GM (3 IN 1 D)
     Route: 048
     Dates: start: 20060413
  2. XYREM (500 MILLIGRAM/MILLILITERS, SOLUTION) (SODIUM OXYBATE) [Suspect]
     Indication: INSOMNIA
     Dosage: 6 GM (3 IN 1 D)
     Route: 048
     Dates: start: 20060413
  3. QUETIAPINE [Concomitant]
  4. SERTRALINE [Concomitant]
  5. DIAZEPAM [Concomitant]

REACTIONS (6)
  - Dental implantation [None]
  - Dental operation [None]
  - Tooth extraction [None]
  - Procedural complication [None]
  - Sinus disorder [None]
  - Sinusitis [None]
